FAERS Safety Report 6674360-5 (Version None)
Quarter: 2010Q2

REPORT INFORMATION
  Report Type: 
  Country: None (occurrence: None)
  Receive Date: 20100409
  Receipt Date: 20100402
  Transmission Date: 20101027
  Serious: Yes (Other)
  Sender: FDA-Public Use
  Company Number: US-JNJFOC-20100401602

PATIENT
  Sex: Female

DRUGS (1)
  1. NUCYNTA [Suspect]
     Indication: PAIN
     Route: 048

REACTIONS (2)
  - ANAPHYLACTIC REACTION [None]
  - PRURITUS [None]
